FAERS Safety Report 17735758 (Version 1)
Quarter: 2020Q2

REPORT INFORMATION
  Report Type: Spontaneous
  Country: GB (occurrence: GB)
  Receive Date: 20200501
  Receipt Date: 20200501
  Transmission Date: 20200714
  Serious: Yes (Other)
  Sender: FDA-Public Use
  Company Number: GB-TEVA-2020-GB-1228205

PATIENT
  Age: 38 Year
  Sex: Male
  Weight: 57.15 kg

DRUGS (7)
  1. NITROFURANTOIN. [Concomitant]
     Active Substance: NITROFURANTOIN
  2. OFLOXACIN. [Suspect]
     Active Substance: OFLOXACIN
     Indication: PROSTATITIS
     Dosage: 400 MG
     Route: 048
     Dates: start: 20200320, end: 20200324
  3. VENTOLIN [Concomitant]
     Active Substance: ALBUTEROL SULFATE
  4. BEROCCA [Concomitant]
     Active Substance: VITAMINS
  5. IBUPROFEN. [Concomitant]
     Active Substance: IBUPROFEN
  6. CLENIL MODULITE [Concomitant]
     Active Substance: BECLOMETHASONE DIPROPIONATE
  7. PARACETAMOL [Concomitant]
     Active Substance: ACETAMINOPHEN

REACTIONS (4)
  - Tendon pain [Not Recovered/Not Resolved]
  - Arthralgia [Not Recovered/Not Resolved]
  - Myalgia [Not Recovered/Not Resolved]
  - Muscular weakness [Not Recovered/Not Resolved]

NARRATIVE: CASE EVENT DATE: 20200321
